FAERS Safety Report 11197242 (Version 2)
Quarter: 2020Q1

REPORT INFORMATION
  Report Type: Report from Study
  Country: US (occurrence: US)
  Receive Date: 20150617
  Receipt Date: 20200116
  Transmission Date: 20200409
  Serious: Yes (Other)
  Sender: FDA-Public Use
  Company Number: US-SA-2015SA016069

PATIENT
  Age: 62 Year
  Sex: Female

DRUGS (12)
  1. IMIGLUCERASE [Suspect]
     Active Substance: IMIGLUCERASE
     Indication: GAUCHER^S DISEASE
     Dosage: 4800 DF,QM
     Route: 042
     Dates: start: 19960723
  2. IMIGLUCERASE [Suspect]
     Active Substance: IMIGLUCERASE
     Dosage: 5600 IU, Q4W
     Route: 042
     Dates: start: 20110414
  3. FOLIC ACID. [Concomitant]
     Active Substance: FOLIC ACID
     Dosage: UNK UNK, UNK
     Route: 065
  4. NORMAL SALINE [Concomitant]
     Active Substance: SODIUM CHLORIDE
  5. REPLESTA [Concomitant]
     Active Substance: CHOLECALCIFEROL
     Dosage: UNK UNK, UNK
     Route: 065
  6. PREDNISONE. [Concomitant]
     Active Substance: PREDNISONE
     Dosage: UNK UNK, UNK
     Route: 065
  7. DIPHENHYDRAMINE. [Concomitant]
     Active Substance: DIPHENHYDRAMINE
     Dosage: UNK UNK, UNK
     Route: 065
  8. SODIUM CHLORIDE. [Concomitant]
     Active Substance: SODIUM CHLORIDE
     Dosage: UNK UNK, UNK
     Route: 065
  9. STERILE WATER [Concomitant]
     Active Substance: WATER
  10. ATELVIA [Concomitant]
     Active Substance: RISEDRONATE SODIUM
     Route: 065
  11. EPINEPHRINE. [Concomitant]
     Active Substance: EPINEPHRINE
     Dosage: UNK UNK, UNK
     Route: 065
  12. METOPROLOL. [Concomitant]
     Active Substance: METOPROLOL
     Dosage: UNK UNK, UNK
     Route: 065

REACTIONS (6)
  - Anaemia [Unknown]
  - Lower respiratory tract infection [Unknown]
  - Haemoglobin decreased [Unknown]
  - Blood bilirubin increased [Unknown]
  - Nasopharyngitis [Unknown]
  - Weight decreased [Unknown]
